FAERS Safety Report 7319589-8 (Version None)
Quarter: 2011Q1

REPORT INFORMATION
  Report Type: 
  Country: None (occurrence: None)
  Receive Date: 20110214
  Receipt Date: 20101213
  Transmission Date: 20110831
  Serious: Yes (Hospitalization, Other)
  Sender: FDA-Public Use
  Company Number: ACO_20559_2010

PATIENT
  Age: 70 Year
  Sex: Female
  Weight: 46.3 kg

DRUGS (9)
  1. ATENOLOL [Concomitant]
  2. SERTRALINE (SERTRALINE) [Concomitant]
  3. AMPYRA [Suspect]
     Indication: GAIT DISTURBANCE
     Dosage: 10 MG,BID,ORAL
     Route: 048
     Dates: start: 20100927, end: 20100928
  4. CELLCEPT [Concomitant]
  5. OMPRAZOLE (OMEPRAZOLE) [Concomitant]
  6. AMANTADINE HCL [Concomitant]
  7. LEVOTHYROXINE SODIUM [Concomitant]
  8. ERGOCALCIFEROL [Concomitant]
  9. MULTIVITAMIN /00831701/ (VITAMINS NOS) [Concomitant]

REACTIONS (11)
  - NAUSEA [None]
  - DIARRHOEA [None]
  - CONFUSIONAL STATE [None]
  - COMPULSIVE LIP BITING [None]
  - LIP PAIN [None]
  - STARING [None]
  - CONVULSION [None]
  - TRANCE [None]
  - HEAD TITUBATION [None]
  - FEELING ABNORMAL [None]
  - DISORIENTATION [None]
